FAERS Safety Report 17594532 (Version 1)
Quarter: 2020Q3

REPORT INFORMATION
  Report Type: Spontaneous
  Country: IN (occurrence: IN)
  Receive Date: 20200327
  Receipt Date: 20200327
  Transmission Date: 20201104
  Serious: Yes (Life-Threatening, Hospitalization, Other)
  Sender: FDA-Public Use
  Company Number: IN-009507513-2003IND008629

PATIENT
  Age: 24 Year
  Sex: Female
  Weight: 36.01 kg

DRUGS (16)
  1. DELAMANID. [Suspect]
     Active Substance: DELAMANID
     Indication: PULMONARY TUBERCULOSIS
     Dosage: 100 MILLIGRAM, BID (50 MG X 2)
     Route: 048
     Dates: start: 20191127
  2. AMOXI/CLAV [Suspect]
     Active Substance: AMOXICILLIN\CLAVULANATE POTASSIUM
     Indication: PULMONARY TUBERCULOSIS
     Dosage: 1250 MILLIGRAM, QD
     Dates: start: 20191127
  3. CLOFAZIMINE [Suspect]
     Active Substance: CLOFAZIMINE
     Indication: PULMONARY TUBERCULOSIS
     Dosage: 100 MILLIGRAM, QD
     Dates: start: 20191127
  4. FOLIC ACID. [Concomitant]
     Active Substance: FOLIC ACID
     Dosage: UNK
     Dates: start: 20191127
  5. METOCLOPRAMIDE. [Concomitant]
     Active Substance: METOCLOPRAMIDE
     Dosage: UNK
     Dates: start: 20191127
  6. IMIPENEM AND CILASTATIN [Suspect]
     Active Substance: CILASTATIN SODIUM\IMIPENEM
     Indication: PULMONARY TUBERCULOSIS
     Dosage: 1 GRAM, BID
     Route: 042
     Dates: start: 20191127
  7. FERROUS SULFATE (+) FOLIC ACID [Concomitant]
     Dosage: UNK
     Dates: start: 20191127
  8. ASCORBIC ACID. [Concomitant]
     Active Substance: ASCORBIC ACID
     Dosage: UNK
     Dates: start: 20191127
  9. BEDAQUILINE [Suspect]
     Active Substance: BEDAQUILINE
     Indication: PULMONARY TUBERCULOSIS
     Dosage: 100 MILLIGRAM, TIW
     Route: 048
     Dates: start: 20191127
  10. PYRIDOXINE [Concomitant]
     Active Substance: PYRIDOXINE
     Dosage: UNK
     Dates: start: 20191127
  11. ERGOCALCIFEROL. [Concomitant]
     Active Substance: ERGOCALCIFEROL
     Dosage: UNK
     Dates: start: 20191127
  12. VITAMIN B (UNSPECIFIED) [Concomitant]
     Active Substance: VITAMIN B
     Dosage: UNK
     Dates: start: 20191127
  13. LINEZOLID. [Suspect]
     Active Substance: LINEZOLID
     Indication: PULMONARY TUBERCULOSIS
     Dosage: 600 MILLIGRAM, QD
     Dates: start: 20191127
  14. OMEPRAZOLE. [Concomitant]
     Active Substance: OMEPRAZOLE
     Dosage: UNK
     Dates: start: 20191127
  15. VITAMIN A [Concomitant]
     Active Substance: VITAMIN A
     Dosage: UNK
     Dates: start: 20191127
  16. VITAMIN E [Concomitant]
     Active Substance: .ALPHA.-TOCOPHEROL
     Dosage: UNK
     Dates: start: 20191127

REACTIONS (10)
  - Peripheral swelling [Unknown]
  - Anaemia [Unknown]
  - Blood pressure decreased [Unknown]
  - Right ventricular failure [Unknown]
  - Oedema peripheral [Unknown]
  - Syncope [Unknown]
  - Dyspnoea [Unknown]
  - Aspartate aminotransferase increased [Unknown]
  - Blood potassium increased [Unknown]
  - Swelling face [Unknown]

NARRATIVE: CASE EVENT DATE: 20191127
